FAERS Safety Report 12895619 (Version 1)
Quarter: 2016Q4

REPORT INFORMATION
  Report Type: Spontaneous
  Country: JP (occurrence: JP)
  Receive Date: 20161030
  Receipt Date: 20161030
  Transmission Date: 20170207
  Serious: Yes (Hospitalization)
  Sender: FDA-Public Use
  Company Number: JP-MYLANLABS-2016M1045006

PATIENT

DRUGS (13)
  1. ALOXI [Suspect]
     Active Substance: PALONOSETRON HYDROCHLORIDE
     Indication: PRODUCT USED FOR UNKNOWN INDICATION
     Dosage: 0.75 MG, UNK
     Route: 041
     Dates: start: 20160513
  2. CARBOPLATIN MYLAN [Suspect]
     Active Substance: CARBOPLATIN
     Indication: OVARIAN CANCER
     Dosage: AUC6
     Route: 041
     Dates: start: 20160513, end: 20160513
  3. ALOXI [Suspect]
     Active Substance: PALONOSETRON HYDROCHLORIDE
     Dosage: ??
     Route: 042
     Dates: start: 20160603, end: 20160603
  4. GEMZAR [Suspect]
     Active Substance: GEMCITABINE HYDROCHLORIDE
     Indication: OVARIAN CANCER
     Dosage: 1000 MG/M2, UNK
     Route: 041
     Dates: start: 20160603
  5. OLOPATADINE [Concomitant]
     Active Substance: OLOPATADINE
     Indication: PRODUCT USED FOR UNKNOWN INDICATION
     Route: 048
  6. TAXOL [Suspect]
     Active Substance: PACLITAXEL
     Indication: OVARIAN CANCER
     Dosage: 175 MG/M2, UNK
     Route: 041
     Dates: start: 20160513
  7. DEXART [Suspect]
     Active Substance: DEXAMETHASONE SODIUM PHOSPHATE
     Indication: PRODUCT USED FOR UNKNOWN INDICATION
     Dosage: 16.5 MG, UNK
     Route: 042
     Dates: start: 20160513, end: 20160513
  8. RESTAMIN /00000401/ [Suspect]
     Active Substance: DIPHENHYDRAMINE
     Indication: PRODUCT USED FOR UNKNOWN INDICATION
     Dosage: 50 MG, UNK
     Route: 048
     Dates: start: 20160513
  9. DEXART [Suspect]
     Active Substance: DEXAMETHASONE SODIUM PHOSPHATE
     Dosage: 6.6 MG, UNK
     Route: 042
     Dates: start: 20160603
  10. SENNA LEAF [Concomitant]
     Active Substance: SENNA LEAF
     Indication: PRODUCT USED FOR UNKNOWN INDICATION
     Route: 065
  11. CARBOPLATIN MYLAN [Suspect]
     Active Substance: CARBOPLATIN
     Dosage: ??
     Route: 041
     Dates: start: 20160603
  12. MAGNESIUM OXIDE. [Concomitant]
     Active Substance: MAGNESIUM OXIDE
     Indication: PRODUCT USED FOR UNKNOWN INDICATION
     Route: 048
  13. RANITIDINE. [Suspect]
     Active Substance: RANITIDINE
     Indication: PRODUCT USED FOR UNKNOWN INDICATION
     Dosage: 50 MG, UNK
     Route: 042
     Dates: start: 20160513

REACTIONS (4)
  - Type IV hypersensitivity reaction [Recovering/Resolving]
  - Oedema peripheral [Unknown]
  - Anaphylactic reaction [Recovering/Resolving]
  - Cutaneous symptom [Recovering/Resolving]

NARRATIVE: CASE EVENT DATE: 20160515
